FAERS Safety Report 4281760-X (Version None)
Quarter: 2004Q1

REPORT INFORMATION
  Report Type: 
  Country: None (occurrence: None)
  Receive Date: 20040129
  Receipt Date: 20040122
  Transmission Date: 20041129
  Serious: Yes (Disabling)
  Sender: FDA-Public Use
  Company Number: PHBS2004JP01162

PATIENT
  Age: 74 Year
  Sex: Male

DRUGS (2)
  1. PARLODEL [Suspect]
     Indication: PARKINSON'S DISEASE
     Route: 048
  2. LOXONIN [Suspect]
     Route: 048
     Dates: end: 20031231

REACTIONS (3)
  - COUGH [None]
  - DYSPNOEA [None]
  - INTERSTITIAL LUNG DISEASE [None]
